FAERS Safety Report 9407131 (Version 1)
Quarter: 2013Q3

REPORT INFORMATION
  Report Type: Spontaneous
  Country: FR (occurrence: FR)
  Receive Date: 20130718
  Receipt Date: 20130718
  Transmission Date: 20140515
  Serious: Yes (Hospitalization)
  Sender: FDA-Public Use
  Company Number: PHHY2013FR074884

PATIENT
  Age: 66 Year
  Sex: Female

DRUGS (5)
  1. VANCOMYCIN SANDOZ [Suspect]
     Indication: POST PROCEDURAL INFECTION
     Dosage: 3.5 G, QD
     Route: 042
     Dates: start: 20130424, end: 20130619
  2. RIMACTAN SANDOZ [Suspect]
     Indication: POST PROCEDURAL INFECTION
     Dosage: 1400 MG, QD
     Route: 048
     Dates: start: 20130424
  3. LACRIFLUID [Suspect]
     Indication: VIITH NERVE PARALYSIS
     Dosage: 3 DF, QD
     Route: 047
     Dates: start: 20130524
  4. VITAMIN A [Suspect]
     Indication: VIITH NERVE PARALYSIS
     Dosage: 1 DF, QD
     Dates: start: 20130524
  5. PARACETAMOL [Concomitant]

REACTIONS (2)
  - Paraesthesia [Recovered/Resolved]
  - Erythema [Recovered/Resolved]
